FAERS Safety Report 14931594 (Version 1)
Quarter: 2018Q2

REPORT INFORMATION
  Report Type: Spontaneous
  Country: SE (occurrence: SE)
  Receive Date: 20180524
  Receipt Date: 20180524
  Transmission Date: 20180711
  Serious: Yes (Other)
  Sender: FDA-Public Use
  Company Number: SE-TEVA-2018-SE-885081

PATIENT
  Sex: Male

DRUGS (1)
  1. MIRTAZAPINE RATIOPHARM [Suspect]
     Active Substance: MIRTAZAPINE
     Indication: DEPRESSION
     Route: 048
     Dates: end: 20081201

REACTIONS (14)
  - Sudden visual loss [Unknown]
  - Neck pain [Unknown]
  - Angina pectoris [Unknown]
  - Erectile dysfunction [Unknown]
  - Rhinorrhoea [Unknown]
  - Cardiac discomfort [Unknown]
  - Photosensitivity reaction [Unknown]
  - Chest pain [Unknown]
  - Premature ageing [Unknown]
  - Rash [Unknown]
  - Tension headache [Unknown]
  - Skin odour abnormal [Unknown]
  - Pyrexia [Unknown]
  - Hypersensitivity [Unknown]

NARRATIVE: CASE EVENT DATE: 2008
